FAERS Safety Report 4303009-1 (Version None)
Quarter: 2004Q1

REPORT INFORMATION
  Report Type: 
  Country: None (occurrence: None)
  Receive Date: 20040126
  Receipt Date: 20031017
  Transmission Date: 20041129
  Serious: No
  Sender: FDA-Public Use
  Company Number: USA031050172

PATIENT
  Age: 5 Year
  Sex: Female
  Weight: 17 kg

DRUGS (1)
  1. STRATTERA [Suspect]
     Indication: ATTENTION DEFICIT/HYPERACTIVITY DISORDER
     Dosage: 25 MG/1 IN THE EVENING
     Dates: start: 20031007

REACTIONS (8)
  - DECREASED APPETITE [None]
  - DYSPEPSIA [None]
  - FEELING ABNORMAL [None]
  - LETHARGY [None]
  - PRESCRIBED OVERDOSE [None]
  - SOMNOLENCE [None]
  - VOMITING [None]
  - WEIGHT DECREASED [None]
